FAERS Safety Report 7883604-3 (Version None)
Quarter: 2011Q4

REPORT INFORMATION
  Report Type: 
  Country: None (occurrence: None)
  Receive Date: 20111102
  Receipt Date: 20111028
  Transmission Date: 20120403
  Serious: Yes (Hospitalization)
  Sender: FDA-Public Use
  Company Number: US-AMGEN-USACT2011056380

PATIENT
  Age: 62 Year
  Sex: Male

DRUGS (14)
  1. PEGFILGRASTIM [Suspect]
     Indication: COLORECTAL CANCER METASTATIC
     Dosage: 6 MG, UNK
     Dates: start: 20110916, end: 20111025
  2. LEUCOVORIN CALCIUM [Concomitant]
     Dosage: 688 MG, Q3WK
     Route: 042
     Dates: start: 20110913, end: 20111025
  3. LISINOPRIL [Concomitant]
  4. BEVACIZUMAB [Concomitant]
     Dosage: 330 MG, Q3WK
     Route: 042
     Dates: start: 20110913, end: 20111025
  5. PROTONIX [Concomitant]
  6. ATIVAN [Concomitant]
  7. LOVENOX [Concomitant]
  8. IRINOTECAN HCL [Concomitant]
     Dosage: 310 MG, Q3WK
     Route: 042
     Dates: start: 20110913, end: 20111025
  9. DURAGESIC-100 [Concomitant]
  10. ZOFRAN [Concomitant]
  11. FLUOROURACIL [Concomitant]
     Dosage: 688 MG, Q3WK
     Route: 042
     Dates: start: 20110913, end: 20111025
  12. OXYCODONE HCL [Concomitant]
  13. MS CONTIN [Concomitant]
  14. COLACE [Concomitant]

REACTIONS (1)
  - MENTAL STATUS CHANGES [None]
